FAERS Safety Report 10165177 (Version 2)
Quarter: 2014Q2

REPORT INFORMATION
  Report Type: Spontaneous
  Country: US (occurrence: US)
  Receive Date: 20140510
  Receipt Date: 20140510
  Transmission Date: 20141212
  Serious: No
  Sender: FDA-Public Use
  Company Number: US-BRISTOL-MYERS SQUIBB COMPANY-19735406

PATIENT
  Age: 66 Year
  Sex: Male
  Weight: 88.43 kg

DRUGS (3)
  1. BYDUREON [Suspect]
     Indication: TYPE 2 DIABETES MELLITUS
     Dosage: LOT NO:73485 EXPDT:JUN16
     Route: 058
     Dates: start: 2012
  2. METFORMIN HCL [Suspect]
  3. LANTUS [Suspect]

REACTIONS (2)
  - Weight decreased [Unknown]
  - Blood glucose increased [Unknown]
